FAERS Safety Report 11038614 (Version 1)
Quarter: 2015Q2

REPORT INFORMATION
  Report Type: Spontaneous
  Country: IT (occurrence: None)
  Receive Date: 20150415
  Receipt Date: 20150415
  Transmission Date: 20150821
  Serious: Yes (Hospitalization)
  Sender: FDA-Public Use
  Company Number: NL01PV15_38844

PATIENT
  Age: 78 Year
  Sex: Female

DRUGS (1)
  1. ZOLPIDEM [Suspect]
     Active Substance: ZOLPIDEM\ZOLPIDEM TARTRATE
     Indication: INSOMNIA
     Dosage: TOTAL
     Route: 048
     Dates: start: 20150329, end: 20150329

REACTIONS (3)
  - Psychomotor hyperactivity [None]
  - Sopor [None]
  - Drug abuse [None]

NARRATIVE: CASE EVENT DATE: 20150330
